FAERS Safety Report 14899859 (Version 1)
Quarter: 2018Q2

REPORT INFORMATION
  Report Type: Spontaneous
  Country: US (occurrence: US)
  Receive Date: 20180427
  Receipt Date: 20180427
  Transmission Date: 20180711
  Serious: Yes (Life-Threatening, Disabling)
  Sender: FDA-Public Use
  Company Number: None

PATIENT
  Age: 41 Year
  Sex: Female
  Weight: 39.6 kg

DRUGS (4)
  1. ALIGN PROBIOTIC [Concomitant]
  2. CIPROFLOXACIN. [Suspect]
     Active Substance: CIPROFLOXACIN
     Indication: URINARY TRACT INFECTION
     Dosage: ?          QUANTITY:10 DF DOSAGE FORM;?
     Route: 048
     Dates: start: 19950606, end: 20121111
  3. CIPROFLOXACIN. [Suspect]
     Active Substance: CIPROFLOXACIN
     Indication: GASTROINTESTINAL BACTERIAL OVERGROWTH
     Dosage: ?          QUANTITY:10 DF DOSAGE FORM;?
     Route: 048
     Dates: start: 19950606, end: 20121111
  4. DIGESTIVE ENZYMES [Concomitant]
     Active Substance: UNSPECIFIED INGREDIENT

REACTIONS (29)
  - Drug intolerance [None]
  - Malnutrition [None]
  - Anxiety [None]
  - Infection [None]
  - Eye movement disorder [None]
  - Mental disorder [None]
  - Muscle atrophy [None]
  - Underweight [None]
  - Back pain [None]
  - Pruritus [None]
  - Urinary tract infection [None]
  - Madarosis [None]
  - Arthralgia [None]
  - Hypoaesthesia [None]
  - Alopecia [None]
  - Insomnia [None]
  - Impaired gastric emptying [None]
  - Hyperhidrosis [None]
  - Body temperature decreased [None]
  - Inflammatory bowel disease [None]
  - Abdominal pain upper [None]
  - Skin exfoliation [None]
  - Systemic infection [None]
  - Paraesthesia [None]
  - Chills [None]
  - Pain in extremity [None]
  - Educational problem [None]
  - Visual impairment [None]
  - Autoimmune disorder [None]

NARRATIVE: CASE EVENT DATE: 19950606
